FAERS Safety Report 10418096 (Version 1)
Quarter: 2014Q3

REPORT INFORMATION
  Report Type: Spontaneous
  Country: US (occurrence: None)
  Receive Date: 20140827
  Receipt Date: 20140827
  Transmission Date: 20150326
  Serious: Yes (Hospitalization, Other)
  Sender: FDA-Public Use
  Company Number: 2009S1006426

PATIENT
  Age: 60 Year
  Sex: Male

DRUGS (4)
  1. PHOSPHO-SODA [Suspect]
     Active Substance: SODIUM PHOSPHATE, DIBASIC\SODIUM PHOSPHATE, MONOBASIC
     Indication: COLONOSCOPY
     Dates: start: 20030706
  2. FLEET [Suspect]
     Active Substance: BISACODYL\GLYCERIN\MINERAL OIL\SODIUM PHOSPHATE, DIBASIC\SODIUM PHOSPHATE, MONOBASIC
     Indication: COLONOSCOPY
     Dates: start: 200307
  3. INDERAL [Concomitant]
     Active Substance: PROPRANOLOL HYDROCHLORIDE
  4. ZIAC (HYDROCHLOROTHIAZIDE BISOPROLOL FUMARATE) [Concomitant]

REACTIONS (14)
  - Post procedural haemorrhage [None]
  - Renal failure chronic [None]
  - Renal cyst [None]
  - Hypophagia [None]
  - Acute prerenal failure [None]
  - Hepatic steatosis [None]
  - Flatulence [None]
  - Peripheral artery stenosis [None]
  - Bronchitis [None]
  - Cough [None]
  - Abdominal pain upper [None]
  - Dehydration [None]
  - Blood pressure inadequately controlled [None]
  - Abdominal pain [None]

NARRATIVE: CASE EVENT DATE: 20030712
